FAERS Safety Report 9663861 (Version 3)
Quarter: 2014Q1

REPORT INFORMATION
  Report Type: Spontaneous
  Country: GB (occurrence: GB)
  Receive Date: 20131101
  Receipt Date: 20140114
  Transmission Date: 20141002
  Serious: Yes (Hospitalization, Disabling, Other)
  Sender: FDA-Public Use
  Company Number: GB-ASTELLAS-2013EU009487

PATIENT
  Age: 38 Year
  Sex: Male
  Weight: 87 kg

DRUGS (4)
  1. TACROLIMUS SYSTEMIC [Suspect]
     Indication: IMMUNOSUPPRESSION
     Dosage: 3 MG, BID
     Route: 048
     Dates: start: 20121023, end: 20130306
  2. TACROLIMUS SYSTEMIC [Suspect]
     Indication: TRANSPLANT
  3. MYCOPHENOLATE [Concomitant]
     Indication: TRANSPLANT
     Dosage: 1 G, BID
     Route: 048
     Dates: start: 20121023, end: 20130101
  4. PREDNISOLONE [Concomitant]
     Indication: TRANSPLANT
     Dosage: 20 MG, UID/QD
     Route: 048
     Dates: start: 20121023

REACTIONS (10)
  - Organising pneumonia [Recovered/Resolved with Sequelae]
  - Toxicity to various agents [Recovered/Resolved]
  - Renal failure acute [Recovered/Resolved]
  - Pyrexia [Unknown]
  - Dehydration [Unknown]
  - Immunosuppressant drug level increased [Unknown]
  - Histology abnormal [Unknown]
  - Granuloma [Unknown]
  - Diarrhoea [Unknown]
  - Influenza [Unknown]
